FAERS Safety Report 18948458 (Version 1)
Quarter: 2021Q1

REPORT INFORMATION
  Report Type: Spontaneous
  Country: US (occurrence: US)
  Receive Date: 20210226
  Receipt Date: 20210226
  Transmission Date: 20210420
  Serious: Yes (Hospitalization, Other)
  Sender: FDA-Public Use
  Company Number: US-ACCORD-218012

PATIENT
  Age: 62 Year
  Sex: Female

DRUGS (1)
  1. LEVOTHYROXINE. [Suspect]
     Active Substance: LEVOTHYROXINE
     Indication: HYPOTHYROIDISM
     Dosage: DECIDED TO DOUBLE THE DOSE FOR THE LAST THREE WEEKS PRIOR TO ADMISSION

REACTIONS (2)
  - Intentional overdose [Unknown]
  - Acute myocardial infarction [Recovering/Resolving]
